FAERS Safety Report 6742306-7 (Version None)
Quarter: 2010Q2

REPORT INFORMATION
  Report Type: 
  Country: None (occurrence: None)
  Receive Date: 20100526
  Receipt Date: 20100517
  Transmission Date: 20101027
  Serious: Yes (Hospitalization, Other)
  Sender: FDA-Public Use
  Company Number: US-AMGEN-QUU400605

PATIENT
  Sex: Female

DRUGS (9)
  1. NPLATE [Suspect]
     Indication: IDIOPATHIC THROMBOCYTOPENIC PURPURA
     Dates: start: 20081004
  2. UNSPECIFIED MEDICATION [Concomitant]
  3. HYDROMORPHONE HCL [Concomitant]
  4. COUMADIN [Concomitant]
  5. BENADRYL [Concomitant]
  6. CARDURA [Concomitant]
  7. PREDNISONE TAB [Concomitant]
  8. GABAPENTIN [Concomitant]
  9. PREVACID [Concomitant]

REACTIONS (9)
  - ARTERIAL THROMBOSIS [None]
  - ARTHRALGIA [None]
  - BRONCHITIS [None]
  - DRUG INEFFECTIVE [None]
  - HYPERCOAGULATION [None]
  - HYPERKALAEMIA [None]
  - LEUKOCYTOSIS [None]
  - PAIN IN EXTREMITY [None]
  - PERIPHERAL ISCHAEMIA [None]
